FAERS Safety Report 18155597 (Version 2)
Quarter: 2020Q3

REPORT INFORMATION
  Report Type: Report from Study
  Country: US (occurrence: US)
  Receive Date: 20200817
  Receipt Date: 20200819
  Transmission Date: 20201103
  Serious: Yes (Other)
  Sender: FDA-Public Use
  Company Number: US-GLAXOSMITHKLINE-US-2018TSO03807

PATIENT
  Age: 66 Year
  Sex: Female

DRUGS (9)
  1. NIRAPARIB [Suspect]
     Active Substance: NIRAPARIB
     Dosage: 200 MG, QD
     Route: 048
  2. ASPIRIN. [Concomitant]
     Active Substance: ASPIRIN
     Indication: PRODUCT USED FOR UNKNOWN INDICATION
     Dosage: UNK
  3. VITAMIN D [Concomitant]
     Active Substance: VITAMIN D NOS
     Indication: PRODUCT USED FOR UNKNOWN INDICATION
     Dosage: UNK
     Dates: start: 201901
  4. ASPIRIN ENTERIC COATED K.P. [Concomitant]
     Active Substance: ASPIRIN
     Indication: PRODUCT USED FOR UNKNOWN INDICATION
     Dosage: UNK
  5. NIRAPARIB [Suspect]
     Active Substance: NIRAPARIB
     Dosage: 200 MG EVERY NIGHT WITHOUT FOOD
     Route: 048
     Dates: start: 20180906
  6. NIRAPARIB [Suspect]
     Active Substance: NIRAPARIB
     Indication: OVARIAN CANCER
     Dosage: 100 MG, QD
     Route: 048
     Dates: start: 20180711, end: 20180905
  7. NIRAPARIB [Suspect]
     Active Substance: NIRAPARIB
     Dosage: 200 MG (2 PILLS, 100 MG EACH) EVERY NIGHT
     Route: 048
  8. NIRAPARIB [Suspect]
     Active Substance: NIRAPARIB
     Dosage: 200 MG, QD
     Route: 048
  9. NIRAPARIB [Suspect]
     Active Substance: NIRAPARIB
     Dosage: 200 MG, QD
     Route: 048

REACTIONS (20)
  - Hypoaesthesia [Not Recovered/Not Resolved]
  - Blood creatinine increased [Not Recovered/Not Resolved]
  - Nausea [Recovered/Resolved]
  - Blood count abnormal [Unknown]
  - Weight increased [Unknown]
  - Constipation [Recovered/Resolved]
  - Adverse drug reaction [Recovered/Resolved]
  - Pulmonary mass [Not Recovered/Not Resolved]
  - Nasopharyngitis [Recovered/Resolved]
  - Renal function test abnormal [Not Recovered/Not Resolved]
  - Recurrent cancer [Unknown]
  - Sunburn [Recovered/Resolved]
  - Dry skin [Unknown]
  - Retching [Not Recovered/Not Resolved]
  - Photosensitivity reaction [Recovered/Resolved]
  - Performance status decreased [Unknown]
  - Cough [Recovered/Resolved]
  - Blood pressure increased [Unknown]
  - Pruritus [Unknown]
  - Underdose [Unknown]

NARRATIVE: CASE EVENT DATE: 20180711
